FAERS Safety Report 9870782 (Version 1)
Quarter: 2014Q1

REPORT INFORMATION
  Report Type: Spontaneous
  Country: US (occurrence: None)
  Receive Date: 20140203
  Receipt Date: 20140203
  Transmission Date: 20141002
  Serious: Yes (Other)
  Sender: FDA-Public Use
  Company Number: AUR-APL-2014-00914

PATIENT
  Age: 89 Year
  Sex: Male

DRUGS (3)
  1. GABAPENTIN (GABAPENTIN) [Suspect]
  2. METFORMIN (METFORMIN) [Suspect]
  3. AMLODIPINE (AMLODIPINE) [Suspect]

REACTIONS (1)
  - Toxicity to various agents [None]
